FAERS Safety Report 23477694 (Version 1)
Quarter: 2024Q1

REPORT INFORMATION
  Report Type: Report from Study
  Country: TH (occurrence: TH)
  Receive Date: 20240204
  Receipt Date: 20240204
  Transmission Date: 20240410
  Serious: No
  Sender: FDA-Public Use
  Company Number: TH-IPSEN Group, Research and Development-2023-19867

PATIENT
  Age: 71 Year
  Sex: Female

DRUGS (3)
  1. CABOMETYX [Suspect]
     Active Substance: CABOZANTINIB S-MALATE
     Indication: Renal cell carcinoma
     Dosage: ONCE DAILY
     Route: 048
     Dates: start: 20230804, end: 20230913
  2. CABOMETYX [Suspect]
     Active Substance: CABOZANTINIB S-MALATE
     Dosage: EVERY OTHER DAY
     Route: 048
     Dates: start: 20231026
  3. CABOMETYX [Suspect]
     Active Substance: CABOZANTINIB S-MALATE
     Dosage: ONCE DAILY
     Route: 048
     Dates: start: 20231108, end: 20231221

REACTIONS (17)
  - Dysphagia [Recovering/Resolving]
  - Blister [Recovering/Resolving]
  - Tremor [Recovering/Resolving]
  - Productive cough [Recovering/Resolving]
  - Mouth ulceration [Recovering/Resolving]
  - Mouth ulceration [Unknown]
  - Mouth ulceration [Unknown]
  - Nausea [Unknown]
  - Decreased appetite [Unknown]
  - Decreased appetite [Recovering/Resolving]
  - Fatigue [Recovering/Resolving]
  - Diarrhoea [Recovering/Resolving]
  - Weight decreased [Unknown]
  - Palmar-plantar erythrodysaesthesia syndrome [Unknown]
  - Diarrhoea [Unknown]
  - Drug ineffective [Unknown]
  - Off label use [Unknown]

NARRATIVE: CASE EVENT DATE: 20230801
